FAERS Safety Report 5313647-5 (Version None)
Quarter: 2007Q2

REPORT INFORMATION
  Report Type: 
  Country: None (occurrence: None)
  Receive Date: 20070425
  Receipt Date: 20070410
  Transmission Date: 20071010
  Serious: Yes (Death, Hospitalization)
  Sender: FDA-Public Use
  Company Number: 2007RR-06827

PATIENT
  Age: 38 Year
  Sex: Male

DRUGS (2)
  1. IBUPROFEN [Suspect]
  2. ACETAMINOPHEN [Suspect]
     Dosage: 10 G, ORAL
     Route: 048

REACTIONS (5)
  - COAGULOPATHY [None]
  - HEPATIC FUNCTION ABNORMAL [None]
  - LIVER DISORDER [None]
  - OVERDOSE [None]
  - SEPSIS [None]
